APPROVED DRUG PRODUCT: TAMOXIFEN CITRATE
Active Ingredient: TAMOXIFEN CITRATE
Strength: EQ 10MG BASE
Dosage Form/Route: TABLET;ORAL
Application: A090878 | Product #001
Applicant: APOTEX INC
Approved: Sep 23, 2011 | RLD: No | RS: No | Type: DISCN